FAERS Safety Report 6474679-7 (Version None)
Quarter: 2009Q4

REPORT INFORMATION
  Report Type: 
  Country: None (occurrence: None)
  Receive Date: 20091204
  Receipt Date: 20091126
  Transmission Date: 20100525
  Serious: Yes (Hospitalization, Other)
  Sender: FDA-Public Use
  Company Number: DE-PFIZER INC-2009304473

PATIENT
  Age: 23 Year
  Sex: Female
  Weight: 55 kg

DRUGS (9)
  1. CLINDAMYCIN HCL [Suspect]
  2. DOXYCYCLINE HYCLATE [Suspect]
  3. ACETAMINOPHEN [Suspect]
  4. ALCOHOL [Suspect]
  5. CETIRIZINE HYDROCHLORIDE [Suspect]
  6. METAMIZOLE [Suspect]
  7. MINOCYCLINE HCL [Suspect]
  8. TETESEPT [Suspect]
  9. DOXYCYCLINE HYCLATE [Suspect]

REACTIONS (3)
  - CONVERSION DISORDER [None]
  - OVERDOSE [None]
  - SUICIDE ATTEMPT [None]
